FAERS Safety Report 5873351-1 (Version None)
Quarter: 2008Q3

REPORT INFORMATION
  Report Type: 
  Country: None (occurrence: None)
  Receive Date: 20080903
  Receipt Date: 20080821
  Transmission Date: 20090109
  Serious: Yes (Congenital Anomaly)
  Sender: FDA-Public Use
  Company Number: B0460708A

PATIENT
  Sex: Male
  Weight: 2.4948 kg

DRUGS (3)
  1. LAMICTAL [Suspect]
     Indication: PARTIAL SEIZURES
     Dosage: TRANSPLACENTARY
     Route: 064
  2. LEVETIRACETAM [Suspect]
     Indication: PARTIAL SEIZURES
     Dosage: TRANSPLACENTARY
     Route: 064
  3. TOPIRAMATE [Suspect]
     Indication: PARTIAL SEIZURES
     Dosage: TRANSPLACENTARY
     Route: 063

REACTIONS (5)
  - CONGENITAL ANOMALY [None]
  - MATERNAL DRUGS AFFECTING FOETUS [None]
  - PREMATURE BABY [None]
  - PYLORIC STENOSIS [None]
  - SMALL FOR DATES BABY [None]
